FAERS Safety Report 9896881 (Version 1)
Quarter: 2014Q1

REPORT INFORMATION
  Report Type: Spontaneous
  Country: US (occurrence: US)
  Receive Date: 20140214
  Receipt Date: 20140214
  Transmission Date: 20141002
  Serious: No
  Sender: FDA-Public Use
  Company Number: US-009507513-1402USA003897

PATIENT
  Age: 42 Year
  Sex: Female

DRUGS (1)
  1. SINGULAIR [Suspect]
     Dosage: 10 MG, UNK
     Route: 048
     Dates: end: 201401

REACTIONS (3)
  - Rib fracture [Unknown]
  - Sneezing [Unknown]
  - Rib fracture [Unknown]
